FAERS Safety Report 17483735 (Version 3)
Quarter: 2020Q2

REPORT INFORMATION
  Report Type: Report from Study
  Country: None (occurrence: US)
  Receive Date: 20200302
  Receipt Date: 20200403
  Transmission Date: 20200713
  Serious: Yes (Hospitalization, Other)
  Sender: FDA-Public Use
  Company Number: US-ABBVIE-20K-163-3221010-00

PATIENT
  Age: 75 Year
  Sex: Female

DRUGS (8)
  1. ROPINIROLE. [Concomitant]
     Active Substance: ROPINIROLE
     Indication: RESTLESS LEGS SYNDROME
     Route: 065
  2. MULTIVITAMIN [Concomitant]
     Active Substance: VITAMINS
     Indication: VITAMIN SUPPLEMENTATION
     Route: 065
  3. VITAMIN D [Concomitant]
     Active Substance: VITAMIN D NOS
     Indication: VITAMIN D DEFICIENCY
     Route: 065
  4. ZOLPIDEM [Concomitant]
     Active Substance: ZOLPIDEM TARTRATE
     Indication: SLEEP DISORDER THERAPY
     Route: 065
  5. HUMIRA [Suspect]
     Active Substance: ADALIMUMAB
     Indication: CROHN^S DISEASE
     Route: 058
     Dates: start: 20181205, end: 20200128
  6. VITAMIN C [Concomitant]
     Active Substance: ASCORBIC ACID
     Indication: VITAMIN SUPPLEMENTATION
     Route: 065
  7. IRON [Concomitant]
     Active Substance: IRON
     Indication: IRON DEFICIENCY
     Route: 065
  8. FAMOTIDINE. [Concomitant]
     Active Substance: FAMOTIDINE
     Indication: HYPERCHLORHYDRIA
     Route: 065

REACTIONS (16)
  - Crohn^s disease [Unknown]
  - Injection site pruritus [Recovered/Resolved]
  - Ileostomy [Recovering/Resolving]
  - Scar [Not Recovered/Not Resolved]
  - Injection site mass [Recovered/Resolved]
  - Colectomy [Recovering/Resolving]
  - Vaginal discharge [Recovering/Resolving]
  - Dysuria [Recovering/Resolving]
  - Wound [Recovered/Resolved]
  - Miliaria [Recovered/Resolved]
  - Urinary tract infection [Recovered/Resolved]
  - Dermatitis diaper [Recovering/Resolving]
  - Urticaria [Recovered/Resolved]
  - Fungal skin infection [Recovered/Resolved]
  - Hernia [Recovered/Resolved]
  - Post procedural complication [Recovered/Resolved]

NARRATIVE: CASE EVENT DATE: 201812
